FAERS Safety Report 9228958 (Version 1)
Quarter: 2013Q2

REPORT INFORMATION
  Report Type: Spontaneous
  Country: US (occurrence: US)
  Receive Date: 20130412
  Receipt Date: 20130412
  Transmission Date: 20140414
  Serious: Yes (Death, Other)
  Sender: FDA-Public Use
  Company Number: US-BRISTOL-MYERS SQUIBB COMPANY-18766386

PATIENT
  Age: 70 Year
  Sex: Male
  Weight: 80 kg

DRUGS (2)
  1. BELATACEPT [Suspect]
     Indication: RENAL TRANSPLANT
     Dosage: 250MG VIAL
     Route: 042
     Dates: start: 20130114
  2. PREDNISONE [Concomitant]
     Route: 048
     Dates: start: 20130205, end: 20130207

REACTIONS (5)
  - Cardiac arrest [Fatal]
  - Pneumocystis jirovecii pneumonia [Unknown]
  - Respiratory failure [Unknown]
  - Mental status changes [Unknown]
  - Renal impairment [Unknown]
